FAERS Safety Report 6428894-9 (Version None)
Quarter: 2009Q4

REPORT INFORMATION
  Report Type: 
  Country: None (occurrence: None)
  Receive Date: 20091104
  Receipt Date: 20091104
  Transmission Date: 20100525
  Serious: Yes (Disabling)
  Sender: FDA-Public Use
  Company Number: None

PATIENT
  Age: 55 Year
  Sex: Female
  Weight: 68.0396 kg

DRUGS (1)
  1. VIVELLE-DOT [Suspect]
     Indication: MENOPAUSAL SYMPTOMS
     Dosage: 1 PATCH WEEKLY, TOP; SLOWLY WEENING OFF
     Route: 061
     Dates: start: 20080827, end: 20091031

REACTIONS (2)
  - BLOOD TRIGLYCERIDES INCREASED [None]
  - MAMMOGRAM ABNORMAL [None]
